FAERS Safety Report 5283982-8 (Version None)
Quarter: 2007Q2

REPORT INFORMATION
  Report Type: 
  Country: None (occurrence: None)
  Receive Date: 20070402
  Receipt Date: 20070326
  Transmission Date: 20071010
  Serious: Yes (Death, Other)
  Sender: FDA-Public Use
  Company Number: GB-PFIZER INC-2007013142

PATIENT
  Age: 18 Year
  Sex: Male

DRUGS (15)
  1. PREDNISOLONE [Suspect]
     Indication: ACUTE LYMPHOCYTIC LEUKAEMIA
     Route: 048
     Dates: start: 20061101, end: 20061201
  2. METHOTREXATE SODIUM [Suspect]
     Indication: ACUTE LYMPHOCYTIC LEUKAEMIA
     Dosage: FREQ:EVERY WEEK
     Route: 037
     Dates: start: 20061101, end: 20061201
  3. VINCRISTINE [Suspect]
     Dosage: FREQ:EVERY WEEK
     Route: 042
  4. PREDNISOLONE [Concomitant]
     Dosage: DAILY DOSE:25MG
     Route: 048
  5. ACYCLOVIR [Concomitant]
     Dosage: DAILY DOSE:200MG
     Route: 048
  6. CITALOPRAM HYDROBROMIDE [Concomitant]
     Dosage: DAILY DOSE:30MG-FREQ:DAILY
     Route: 048
  7. FLUCONAZOLE [Concomitant]
     Dosage: DAILY DOSE:250MG-FREQ:DAILY
     Route: 048
  8. GABAPENTIN [Concomitant]
     Dosage: DAILY DOSE:200MG
     Route: 048
  9. KETOVITE [Concomitant]
     Dosage: TEXT:3 DF-FREQ:DAILY
  10. KETOVITE [Concomitant]
     Dosage: DAILY DOSE:5ML-FREQ:DAILY
  11. INSULIN [Concomitant]
     Route: 065
  12. OMEPRAZOLE [Concomitant]
     Dosage: DAILY DOSE:40MG-FREQ:DAILY
     Route: 048
  13. VITAMIN K [Concomitant]
     Dosage: DAILY DOSE:10MG
     Route: 048
  14. ACIDOPHILUS [Concomitant]
     Dosage: FREQ:DAILY
  15. MAGNESIUM [Concomitant]
     Dosage: TEXT:2 TABLETS DAILY

REACTIONS (2)
  - CARDIAC ARREST [None]
  - NEUTROPENIC SEPSIS [None]
